FAERS Safety Report 5290937-6 (Version None)
Quarter: 2007Q2

REPORT INFORMATION
  Report Type: 
  Country: None (occurrence: None)
  Receive Date: 20070405
  Receipt Date: 20070405
  Transmission Date: 20071010
  Serious: Yes (Life-Threatening, Hospitalization)
  Sender: FDA-Public Use
  Company Number: None

PATIENT
  Age: 65 Year
  Sex: Male

DRUGS (13)
  1. ASPIRIN [Suspect]
     Indication: CORONARY ARTERY DISEASE
     Dosage: 325 MG  DAILY   PO
     Route: 048
  2. ASPIRIN [Suspect]
     Indication: ISCHAEMIC STROKE
     Dosage: 325 MG  DAILY   PO
     Route: 048
  3. CLOPIDOGREL [Suspect]
     Indication: CORONARY ARTERY DISEASE
     Dosage: 75 MG  DAILY  PO
     Route: 048
  4. CLOPIDOGREL [Suspect]
     Indication: ISCHAEMIC STROKE
     Dosage: 75 MG  DAILY  PO
     Route: 048
  5. DUONEBS NEBULIZERS [Concomitant]
  6. AMLODIPINE [Concomitant]
  7. PRAVASTATIN [Concomitant]
  8. LANTUS [Concomitant]
  9. POTASSIUM CHLORIDE [Concomitant]
  10. ACETAMINOPHEN [Concomitant]
  11. TOLTERADINE [Concomitant]
  12. ACETAZOLAMIDE [Concomitant]
  13. PAROXETINE [Concomitant]

REACTIONS (2)
  - FALL [None]
  - SUBDURAL HAEMATOMA [None]
